FAERS Safety Report 9439160 (Version 3)
Quarter: 2013Q3

REPORT INFORMATION
  Report Type: Spontaneous
  Country: JP (occurrence: JP)
  Receive Date: 20130802
  Receipt Date: 20130830
  Transmission Date: 20140515
  Serious: Yes (Hospitalization, Other)
  Sender: FDA-Public Use
  Company Number: JP-OTSUKA-JP-2013-12747

PATIENT
  Age: 81 Year
  Sex: Female
  Weight: 51 kg

DRUGS (7)
  1. SAMSCA [Suspect]
     Indication: CARDIAC FAILURE CONGESTIVE
     Dosage: 7.5 MG MILLIGRAM(S), QD
     Route: 048
     Dates: start: 20130714, end: 20130718
  2. LASIX [Suspect]
     Indication: CARDIAC FAILURE CONGESTIVE
     Dosage: 40 MG MILLIGRAM(S), QD
     Route: 048
     Dates: start: 20130714, end: 20130718
  3. ALDACTONE A [Concomitant]
     Indication: CARDIAC FAILURE CONGESTIVE
     Dosage: 25 MG MILLIGRAM(S), QD
     Route: 048
     Dates: start: 20130714, end: 20130718
  4. BAYASPIRIN [Concomitant]
     Indication: PROPHYLAXIS
     Dosage: 100 MG MILLIGRAM(S), QD
     Route: 048
     Dates: start: 20130714
  5. FAMOTIDINE [Concomitant]
     Indication: GASTRIC ULCER
     Dosage: 20 MG MILLIGRAM(S), QD
     Route: 048
     Dates: start: 20130717
  6. AMLODIPINE [Concomitant]
     Indication: HYPERTENSION
     Dosage: 5 MG MILLIGRAM(S), BID
     Route: 048
     Dates: start: 20130717
  7. COVERSYL [Concomitant]
     Indication: HYPERTENSION
     Dosage: 4 MG MILLIGRAM(S), QD
     Route: 048
     Dates: start: 20130718

REACTIONS (4)
  - Hypokalaemia [Recovered/Resolved]
  - Altered state of consciousness [Recovered/Resolved with Sequelae]
  - Orthostatic hypotension [Unknown]
  - Hypernatraemia [Recovering/Resolving]
